FAERS Safety Report 13335962 (Version 1)
Quarter: 2017Q1

REPORT INFORMATION
  Report Type: Report from Study
  Country: BR (occurrence: BR)
  Receive Date: 20170314
  Receipt Date: 20170314
  Transmission Date: 20170428
  Serious: Yes (Other)
  Sender: FDA-Public Use
  Company Number: PHHY2017BR038284

PATIENT
  Sex: Male
  Weight: 42 kg

DRUGS (1)
  1. ACLASTA [Suspect]
     Active Substance: ZOLEDRONIC ACID
     Indication: OSTEOPOROSIS
     Dosage: 5 MG, Q12MO
     Route: 042
     Dates: start: 20161115

REACTIONS (10)
  - Pyrexia [Recovering/Resolving]
  - Urinary tract infection [Recovered/Resolved]
  - Hypertension [Recovering/Resolving]
  - Tremor [Unknown]
  - Incorrect drug administration duration [Unknown]
  - Malaise [Unknown]
  - Pain [Recovered/Resolved]
  - Nasopharyngitis [Recovering/Resolving]
  - Burning sensation [Recovering/Resolving]
  - Dysstasia [Recovering/Resolving]
